FAERS Safety Report 10062672 (Version 1)
Quarter: 2014Q2

REPORT INFORMATION
  Report Type: Spontaneous
  Country: DE (occurrence: DE)
  Receive Date: 20140407
  Receipt Date: 20140407
  Transmission Date: 20141212
  Serious: Yes (Hospitalization)
  Sender: FDA-Public Use
  Company Number: DE-ABBVIE-14P-062-1219052-00

PATIENT
  Age: 50 Year
  Sex: Female
  Weight: 80 kg

DRUGS (3)
  1. HUMIRA [Suspect]
     Indication: CROHN^S DISEASE
     Route: 058
     Dates: start: 201309
  2. DEPO PROVERA [Suspect]
     Indication: CONTRACEPTION
     Route: 058
     Dates: start: 201309, end: 201312
  3. CHOLESTAGEL [Concomitant]
     Indication: BILE ACID MALABSORPTION
     Route: 048
     Dates: start: 201310

REACTIONS (2)
  - Intracranial venous sinus thrombosis [Not Recovered/Not Resolved]
  - Antiphospholipid syndrome [Not Recovered/Not Resolved]
